FAERS Safety Report 23894788 (Version 2)
Quarter: 2024Q2

REPORT INFORMATION
  Report Type: Report from Study
  Country: US (occurrence: US)
  Receive Date: 20240524
  Receipt Date: 20240625
  Transmission Date: 20240716
  Serious: No
  Sender: FDA-Public Use
  Company Number: US-ABBVIE-5769228

PATIENT
  Sex: Male
  Weight: 132 kg

DRUGS (5)
  1. SKYRIZI [Suspect]
     Active Substance: RISANKIZUMAB-RZAA
     Indication: Psoriatic arthropathy
     Route: 058
     Dates: start: 20240416
  2. FOLIC ACID [Concomitant]
     Active Substance: FOLIC ACID
     Indication: Vitamin supplementation
  3. METHOTREXATE [Concomitant]
     Active Substance: METHOTREXATE
     Indication: Psoriatic arthropathy
  4. LIDOCAINE [Concomitant]
     Active Substance: LIDOCAINE
     Indication: Pain
  5. VALACYCLOVIR [Concomitant]
     Active Substance: VALACYCLOVIR HYDROCHLORIDE
     Indication: Oral herpes

REACTIONS (6)
  - Oral herpes [Not Recovered/Not Resolved]
  - Rash macular [Recovered/Resolved]
  - Mouth haemorrhage [Not Recovered/Not Resolved]
  - Burning sensation [Not Recovered/Not Resolved]
  - Wound [Not Recovered/Not Resolved]
  - Oropharyngeal pain [Not Recovered/Not Resolved]

NARRATIVE: CASE EVENT DATE: 20240101
